FAERS Safety Report 4748698-2 (Version None)
Quarter: 2005Q3

REPORT INFORMATION
  Report Type: 
  Country: None (occurrence: None)
  Receive Date: 20050817
  Receipt Date: 20050809
  Transmission Date: 20060218
  Serious: Yes (Other)
  Sender: FDA-Public Use
  Company Number: 2005113116

PATIENT
  Sex: Female
  Weight: 81.1939 kg

DRUGS (16)
  1. ZYRTEC [Suspect]
     Indication: ALLERGIC SINUSITIS
     Dosage: 10 MG (10 MG, 1 IN 1 D),
  2. NEURONTIN [Suspect]
     Indication: NEUROPATHY
     Dosage: 900 MG (10 MG, 1IN 1 D),
  3. ACCUPRIL [Concomitant]
  4. FURMOSEMIDE (FUROSEMIDE) [Concomitant]
  5. POTASSIUM CHLORIDE [Concomitant]
  6. TRICOR [Concomitant]
  7. LEVOTHROID [Concomitant]
  8. RELAFEN [Concomitant]
  9. TYLENOL W/ CODEINE NO. 3 [Concomitant]
  10. NEXIUM [Concomitant]
  11. REGLAN [Concomitant]
  12. MECLIZINE [Concomitant]
  13. GLYBURIDE [Concomitant]
  14. PROVENTINL INHALER (SALBUTAMOL) [Concomitant]
  15. PULICORT (BUDESONIDE) [Concomitant]
  16. BECONASE AQUA (BECLOMETASONE DIPROPIONATE) [Concomitant]

REACTIONS (5)
  - ANAEMIA [None]
  - DRUG EFFECT DECREASED [None]
  - ERYTHROPOIESIS ABNORMAL [None]
  - RENAL IMPAIRMENT [None]
  - SEDATION [None]
